FAERS Safety Report 7632223-2 (Version None)
Quarter: 2011Q3

REPORT INFORMATION
  Report Type: 
  Country: None (occurrence: None)
  Receive Date: 20110725
  Receipt Date: 20100622
  Transmission Date: 20111222
  Serious: Yes (Hospitalization, Other)
  Sender: FDA-Public Use
  Company Number: US-BRISTOL-MYERS SQUIBB COMPANY-15160898

PATIENT
  Age: 68 Year
  Sex: Male
  Weight: 70 kg

DRUGS (3)
  1. WINE [Interacting]
  2. CHEMOTHERAPY [Suspect]
     Dates: start: 20100601
  3. COUMADIN [Interacting]
     Dates: start: 20100101

REACTIONS (2)
  - FOOD INTERACTION [None]
  - GASTRIC ULCER HAEMORRHAGE [None]
